FAERS Safety Report 4639959-6 (Version None)
Quarter: 2005Q2

REPORT INFORMATION
  Report Type: 
  Country: None (occurrence: None)
  Receive Date: 20050328
  Receipt Date: 20050105
  Transmission Date: 20051028
  Serious: No
  Sender: FDA-Public Use
  Company Number: USA050187559

PATIENT
  Age: 10 Year
  Sex: Male
  Weight: 32 kg

DRUGS (2)
  1. STRATTERA [Suspect]
     Indication: ANGER
     Dosage: 25 MG DAY
     Dates: start: 20041208
  2. CONCERTA [Concomitant]

REACTIONS (2)
  - DEPRESSED MOOD [None]
  - FEELING OF RELAXATION [None]
